FAERS Safety Report 9621011 (Version 1)
Quarter: 2013Q4

REPORT INFORMATION
  Report Type: Spontaneous
  Country: US (occurrence: US)
  Receive Date: 20131015
  Receipt Date: 20131015
  Transmission Date: 20140711
  Serious: Yes (Other)
  Sender: FDA-Public Use
  Company Number: US-JNJFOC-20131003377

PATIENT
  Age: 81 Year
  Sex: Male
  Weight: 90.72 kg

DRUGS (1)
  1. XARELTO [Suspect]
     Indication: THROMBOSIS
     Route: 048
     Dates: start: 201309

REACTIONS (2)
  - Haematuria [Unknown]
  - Cystitis [Unknown]
